FAERS Safety Report 18735731 (Version 9)
Quarter: 2021Q4

REPORT INFORMATION
  Report Type: Spontaneous
  Country: IL (occurrence: IL)
  Receive Date: 20210113
  Receipt Date: 20211217
  Transmission Date: 20220303
  Serious: Yes (Other)
  Sender: FDA-Public Use
  Company Number: IL-PFIZER INC-2019022408

PATIENT
  Age: 69 Year
  Sex: Female

DRUGS (2)
  1. ELELYSO [Suspect]
     Active Substance: TALIGLUCERASE ALFA
     Indication: Gaucher^s disease
     Dosage: 1000 IU, FOR INFUSION, TREATMENT DURATION: ABOUT AN HOUR AND A HALF
     Route: 042
  2. ELELYSO [Suspect]
     Active Substance: TALIGLUCERASE ALFA
     Dosage: 1200 UNITS PER INFUSION TWICE A MONTH
     Route: 042

REACTIONS (2)
  - Chest pain [Unknown]
  - Inappropriate schedule of product administration [Unknown]
